FAERS Safety Report 8174993-3 (Version None)
Quarter: 2012Q1

REPORT INFORMATION
  Report Type: 
  Country: None (occurrence: None)
  Receive Date: 20120229
  Receipt Date: 20120220
  Transmission Date: 20120608
  Serious: Yes (Hospitalization)
  Sender: FDA-Public Use
  Company Number: PHHY2011US35109

PATIENT
  Sex: Male
  Weight: 49.76 kg

DRUGS (26)
  1. QVAR 40 [Concomitant]
  2. KEPPRA [Concomitant]
     Dosage: 8 ML, BID
     Dates: start: 20100901
  3. ALBUTEROL [Concomitant]
     Dosage: UNK
     Dates: start: 20060420
  4. EXJADE [Suspect]
     Indication: SICKLE CELL ANAEMIA
     Dosage: 1875 MG, DAILY
     Route: 048
     Dates: start: 20060912
  5. NUTRIENTS [Concomitant]
  6. COUMADIN [Concomitant]
     Dosage: 2 MG, UNK
     Dates: start: 20110414
  7. RISPERDAL [Concomitant]
     Dosage: 0.5 ML, BID
     Dates: start: 20060420
  8. FOLIC ACID [Concomitant]
     Dosage: 1 MG, DAILY
     Dates: start: 20080904
  9. LOVENOX [Concomitant]
  10. EXJADE [Suspect]
     Indication: IRON OVERLOAD
     Dosage: 2000 MG, DAILY
     Dates: start: 20101118
  11. BLOOD TRANSFUSION, AUXILIARY PRODUCTS [Concomitant]
  12. ACETAMINOPHEN [Concomitant]
     Dosage: 480 MG, UNK
     Dates: start: 20051006
  13. DRISDOL [Concomitant]
     Dosage: 5 ML, EVERY 3 MONTHS
     Dates: start: 20101118
  14. ACETAMINOPHEN [Concomitant]
     Dosage: 160MG/5ML, UNK
     Dates: start: 20051006
  15. PERIDEX [Concomitant]
  16. DIPHENHYDRAMINE HCL [Concomitant]
     Dosage: 37.5 MG, UNK
     Dates: start: 20051006
  17. EXJADE [Suspect]
     Dosage: 2000 MG, DAILY
     Route: 048
     Dates: start: 20110429
  18. NUTREN 1.0 [Concomitant]
     Dosage: 90ML/HR X 21 HRS PER DAY
     Dates: start: 20110318
  19. ANTICOAGULANTS [Concomitant]
  20. ZANTAC [Concomitant]
     Dosage: 10 ML, BID
     Dates: start: 20060420
  21. LEMON [Concomitant]
     Dosage: UNK
     Dates: start: 20050225
  22. BACLOFEN [Concomitant]
     Dosage: 2 DF, DAILY
     Dates: start: 20100901
  23. BACITRACIN [Concomitant]
  24. BISACODYL [Concomitant]
  25. CALCIUM CARBONATE [Concomitant]
     Dosage: 10 ML, UNK
     Dates: start: 20100325
  26. BENADRYL [Concomitant]
     Dosage: 37.5 MG, UNK

REACTIONS (10)
  - INFECTION [None]
  - WEIGHT DECREASED [None]
  - PYREXIA [None]
  - RENAL PAPILLARY NECROSIS [None]
  - CONSTIPATION [None]
  - URINARY RETENTION [None]
  - ABDOMINAL PAIN [None]
  - DEHYDRATION [None]
  - HAEMATURIA [None]
  - VOMITING [None]
